FAERS Safety Report 5300045-3 (Version None)
Quarter: 2007Q2

REPORT INFORMATION
  Report Type: 
  Country: None (occurrence: None)
  Receive Date: 20070417
  Receipt Date: 20070409
  Transmission Date: 20071010
  Serious: Yes (Other)
  Sender: FDA-Public Use
  Company Number: US-PFIZER INC-2006078753

PATIENT
  Sex: Male
  Weight: 63.5 kg

DRUGS (7)
  1. QUINAPRIL HCL [Suspect]
     Indication: HYPERTENSION
  2. AMIODARONE HCL [Concomitant]
  3. SYNTHROID [Concomitant]
  4. FOSAMAX [Concomitant]
  5. VITAMINS [Concomitant]
  6. HERBAL PREPARATION [Concomitant]
  7. FLAXSEED OIL [Concomitant]

REACTIONS (4)
  - COELIAC DISEASE [None]
  - DERMATITIS [None]
  - ECZEMA [None]
  - IRRITABLE BOWEL SYNDROME [None]
